FAERS Safety Report 8557365-9 (Version None)
Quarter: 2012Q3

REPORT INFORMATION
  Report Type: 
  Country: None (occurrence: None)
  Receive Date: 20120801
  Receipt Date: 20120731
  Transmission Date: 20120928
  Serious: Yes (Other)
  Sender: FDA-Public Use
  Company Number: VE-PFIZER INC-2012158339

PATIENT
  Sex: Female

DRUGS (3)
  1. BETALOC ZOK ^ASTRA^ [Concomitant]
     Indication: HYPERTENSION
     Dosage: 47.5 MG, 1X/DAY
     Route: 048
  2. LIPITOR [Suspect]
     Dosage: 10 MG, UNK
  3. ATACAND [Concomitant]
     Indication: HYPERTENSION
     Dosage: 8 MG, 1X/DAY
     Route: 048

REACTIONS (1)
  - CATARACT [None]
